FAERS Safety Report 17570329 (Version 2)
Quarter: 2020Q3

REPORT INFORMATION
  Report Type: Spontaneous
  Country: US (occurrence: US)
  Receive Date: 20200323
  Receipt Date: 20200828
  Transmission Date: 20201102
  Serious: No
  Sender: FDA-Public Use
  Company Number: US-TEVA-2020-US-1210148

PATIENT
  Sex: Female

DRUGS (2)
  1. AJOVY [Suspect]
     Active Substance: FREMANEZUMAB-VFRM
     Indication: PRODUCT USED FOR UNKNOWN INDICATION
     Route: 065
  2. AJOVY [Suspect]
     Active Substance: FREMANEZUMAB-VFRM

REACTIONS (2)
  - Intercepted product storage error [Unknown]
  - Product storage error [Unknown]
